FAERS Safety Report 7715506-7 (Version None)
Quarter: 2011Q3

REPORT INFORMATION
  Report Type: 
  Country: None (occurrence: None)
  Receive Date: 20110810
  Receipt Date: 20110712
  Transmission Date: 20111222
  Serious: No
  Sender: FDA-Public Use
  Company Number: 1000018937

PATIENT
  Age: 57 Year
  Sex: Female
  Weight: 90.72 kg

DRUGS (5)
  1. SAVELLA [Suspect]
     Indication: FIBROMYALGIA
     Dosage: 50 MG(25 MG, 2 IN 1 D), ORAL
     Route: 048
     Dates: start: 20101125, end: 20101128
  2. ZEGERID (OMEPRAZOLE, SODIUM BICARBONATE) (OMEPRAZOLE, SODIUM BICARBONA [Concomitant]
  3. ALBUTEROL (ALBUTEROL) (ALBUTEROL) [Concomitant]
  4. SAVELLA [Suspect]
     Indication: FIBROMYALGIA
     Dosage: 12.5 MG (12.5 MG, 1 IN 1 D), ORAL,  25 MG (12.5 MG, 2 IN 1 D), ORAL
     Route: 048
     Dates: start: 20101123, end: 20101124
  5. SAVELLA [Suspect]
     Indication: FIBROMYALGIA
     Dosage: 12.5 MG (12.5 MG, 1 IN 1 D), ORAL,  25 MG (12.5 MG, 2 IN 1 D), ORAL
     Route: 048
     Dates: start: 20101122, end: 20101122

REACTIONS (6)
  - TREMOR [None]
  - DEPRESSION [None]
  - ANXIETY [None]
  - DYSPNOEA [None]
  - DISTURBANCE IN ATTENTION [None]
  - CRYING [None]
